FAERS Safety Report 20920828 (Version 1)
Quarter: 2022Q2

REPORT INFORMATION
  Report Type: Spontaneous
  Country: US (occurrence: US)
  Receive Date: 20220606
  Receipt Date: 20220606
  Transmission Date: 20220720
  Serious: Yes (Other)
  Sender: FDA-Public Use
  Company Number: US-AMGEN-USASP2022089870

PATIENT

DRUGS (1)
  1. REPATHA [Suspect]
     Active Substance: EVOLOCUMAB
     Indication: Hyperlipidaemia
     Dosage: 140 MILLIGRAM, Q2WK
     Route: 065
     Dates: start: 202202, end: 20220305

REACTIONS (5)
  - Neuropathy peripheral [Not Recovered/Not Resolved]
  - Weight decreased [Recovering/Resolving]
  - Muscle atrophy [Unknown]
  - Angiopathy [Unknown]
  - Inappropriate schedule of product administration [Unknown]
